FAERS Safety Report 9494110 (Version 1)
Quarter: 2013Q3

REPORT INFORMATION
  Report Type: Spontaneous
  Country: GB (occurrence: None)
  Receive Date: 20130827
  Receipt Date: 20130827
  Transmission Date: 20140515
  Serious: Yes (Disabling, Other)
  Sender: FDA-Public Use
  Company Number: GER/UKI/13/0034251

PATIENT
  Age: 49 Year
  Sex: Female

DRUGS (1)
  1. TERBINAFINE [Suspect]
     Indication: RASH
     Route: 048
     Dates: start: 20130523, end: 20130704

REACTIONS (4)
  - Ageusia [None]
  - Dysgeusia [None]
  - Quality of life decreased [None]
  - Weight decreased [None]
